FAERS Safety Report 9032064 (Version 1)
Quarter: 2013Q1

REPORT INFORMATION
  Report Type: Spontaneous
  Country: US (occurrence: US)
  Receive Date: 20130125
  Receipt Date: 20130125
  Transmission Date: 20140127
  Serious: No
  Sender: FDA-Public Use
  Company Number: US-PFIZER INC-2013031486

PATIENT
  Age: 71 Year
  Sex: Female
  Weight: 104.31 kg

DRUGS (5)
  1. LYRICA [Suspect]
     Indication: PAIN IN EXTREMITY
     Dosage: 200 MG, 3X/DAY
     Route: 048
  2. INSULIN [Concomitant]
     Dosage: UNK
  3. HYDROCHLOROTHIAZIDE [Concomitant]
     Dosage: UNK
  4. ASPIRIN [Concomitant]
     Indication: CARDIAC DISORDER
     Dosage: UNK
  5. VICODIN [Concomitant]
     Dosage: UNK

REACTIONS (3)
  - Dry skin [Unknown]
  - Skin discolouration [Unknown]
  - Drug ineffective [Unknown]
